FAERS Safety Report 6634226-3 (Version None)
Quarter: 2010Q1

REPORT INFORMATION
  Report Type: 
  Country: None (occurrence: None)
  Receive Date: 20100311
  Receipt Date: 20100311
  Transmission Date: 20100710
  Serious: No
  Sender: FDA-Public Use
  Company Number: None

PATIENT
  Sex: Male
  Weight: 72.7 kg

DRUGS (2)
  1. VIBATIV [Suspect]
     Indication: PYREXIA
     Dosage: 750 MG EVERY 24 HOURS IV BOLUS
     Route: 040
     Dates: start: 20100305, end: 20100309
  2. VIBATIV [Suspect]
     Indication: STAPHYLOCOCCAL INFECTION
     Dosage: 750 MG EVERY 24 HOURS IV BOLUS
     Route: 040
     Dates: start: 20100305, end: 20100309

REACTIONS (3)
  - ALANINE AMINOTRANSFERASE INCREASED [None]
  - ASPARTATE AMINOTRANSFERASE INCREASED [None]
  - BLOOD ALKALINE PHOSPHATASE INCREASED [None]
